FAERS Safety Report 5908135-9 (Version None)
Quarter: 2008Q4

REPORT INFORMATION
  Report Type: 
  Country: None (occurrence: None)
  Receive Date: 20081003
  Receipt Date: 20080922
  Transmission Date: 20090506
  Serious: Yes (Hospitalization)
  Sender: FDA-Public Use
  Company Number: CH-PFIZER INC-2008081223

PATIENT
  Age: 48 Year
  Sex: Female
  Weight: 65 kg

DRUGS (9)
  1. EPIRUBICIN HYDROCHLORIDE [Suspect]
     Dosage: DAILY DOSE:160MG-FREQ:1 IN 2 WEEKS
     Route: 042
     Dates: start: 20080519, end: 20080707
  2. NEULASTA [Suspect]
     Indication: CHEMOTHERAPY
     Dosage: DAILY DOSE:6MG-FREQ:1 IN 2 WEEKS
     Route: 042
     Dates: start: 20080606, end: 20080708
  3. ENDOXAN [Suspect]
     Dosage: DAILY DOSE:1300MG-FREQ:1 IN 2 WEEKS
     Route: 042
     Dates: start: 20080519, end: 20080707
  4. TAXOL [Suspect]
     Dosage: DAILY DOSE:310MG-FREQ:1 IN 2 WEEKS
     Route: 042
     Dates: start: 20080721
  5. ZOFRAN [Concomitant]
     Dosage: DAILY DOSE:4MG
     Route: 042
     Dates: start: 20080519
  6. SOLU-MEDROL [Concomitant]
     Dosage: DAILY DOSE:50MG-FREQ:1 IN 1 WEEKS
     Route: 042
     Dates: start: 20080519
  7. METOCLOPRAMIDE HYDROCHLORIDE [Concomitant]
     Dosage: DAILY DOSE:10MG-FREQ:1 IN 1 WEEKS
     Route: 042
     Dates: start: 20080519
  8. METOPROLOL SUCCINATE [Concomitant]
     Dosage: DAILY DOSE:47.5MG
     Route: 048
  9. BLACK COHOSH [Concomitant]
     Dosage: DAILY DOSE:6.5MG
     Route: 048

REACTIONS (1)
  - LUNG INFILTRATION [None]
